FAERS Safety Report 19388137 (Version 2)
Quarter: 2021Q2

REPORT INFORMATION
  Report Type: Spontaneous
  Country: CA (occurrence: CA)
  Receive Date: 20210608
  Receipt Date: 20210616
  Transmission Date: 20210717
  Serious: Yes (Other)
  Sender: FDA-Public Use
  Company Number: CA-CELLTRION INC.-2021CA001084

PATIENT

DRUGS (11)
  1. TYLENOL [Concomitant]
     Active Substance: ACETAMINOPHEN
     Dosage: 1 DF
     Route: 065
  2. INFLECTRA [Suspect]
     Active Substance: INFLIXIMAB-DYYB
     Dosage: 900 MG EVERY 0, 2, 6 WEEKS THEN EVERY 8 WEEKS
     Route: 042
     Dates: start: 20210508
  3. ZOPICLONE [Concomitant]
     Active Substance: ZOPICLONE
     Dosage: 15 MG
  4. PREDNISONE. [Concomitant]
     Active Substance: PREDNISONE
     Dosage: 1 DF
     Route: 065
  5. INFLECTRA [Suspect]
     Active Substance: INFLIXIMAB-DYYB
     Indication: COLITIS ULCERATIVE
     Dosage: 900 MG, EVERY 0, 2, 6 WEEKS THEN EVERY 8 WEEKS
     Route: 042
     Dates: start: 20210117
  6. INFLECTRA [Suspect]
     Active Substance: INFLIXIMAB-DYYB
     Dosage: 900 MG EVERY 0, 2, 6 WEEKS THEN EVERY 8 WEEKS
     Route: 042
     Dates: start: 20210201
  7. INFLECTRA [Suspect]
     Active Substance: INFLIXIMAB-DYYB
     Dosage: 900 MG EVERY 0, 2, 6 WEEKS THEN EVERY 8 WEEKS
     Route: 042
     Dates: start: 20210304
  8. DIPHENHYDRAMINE. [Concomitant]
     Active Substance: DIPHENHYDRAMINE
     Indication: PREMEDICATION
     Dosage: 50 MG
     Dates: start: 20210508, end: 20210508
  9. HYDROCORTISONE. [Concomitant]
     Active Substance: HYDROCORTISONE
     Indication: PREMEDICATION
     Dosage: 100 MG
     Dates: start: 20210508, end: 20210508
  10. PREDNISONE. [Concomitant]
     Active Substance: PREDNISONE
     Dosage: 15 MG
     Route: 065
  11. PREDNISONE. [Concomitant]
     Active Substance: PREDNISONE
     Dosage: 10 MG (TAPERING DOSE: RECENTLY DECREASED FROM 15MG TO 10MG)
     Route: 065
     Dates: start: 2021

REACTIONS (28)
  - Syncope [Unknown]
  - Muscle spasms [Recovering/Resolving]
  - Infusion site bruising [Recovered/Resolved]
  - Hyperhidrosis [Unknown]
  - Off label use [Unknown]
  - Dyskinesia [Unknown]
  - Peripheral swelling [Unknown]
  - Headache [Recovering/Resolving]
  - Respiratory tract congestion [Unknown]
  - Arthralgia [Unknown]
  - Heart rate decreased [Unknown]
  - Dysuria [Recovering/Resolving]
  - Cyanosis [Recovered/Resolved]
  - Sinusitis [Recovered/Resolved]
  - Insomnia [Unknown]
  - Blood pressure decreased [Unknown]
  - Asthenia [Recovering/Resolving]
  - Condition aggravated [Unknown]
  - Restlessness [Unknown]
  - Eye pain [Recovering/Resolving]
  - Dyspnoea [Recovering/Resolving]
  - Pallor [Unknown]
  - Pain [Not Recovered/Not Resolved]
  - Pyrexia [Recovering/Resolving]
  - Chills [Unknown]
  - Infusion site pain [Recovered/Resolved]
  - Constipation [Recovering/Resolving]
  - Gait disturbance [Unknown]

NARRATIVE: CASE EVENT DATE: 202101
